FAERS Safety Report 4735005-4 (Version None)
Quarter: 2005Q3

REPORT INFORMATION
  Report Type: 
  Country: None (occurrence: None)
  Receive Date: 20050804
  Receipt Date: 20050720
  Transmission Date: 20060218
  Serious: Yes (Death)
  Sender: FDA-Public Use
  Company Number: MK200505-0043-2

PATIENT
  Age: 67 Year
  Sex: Male

DRUGS (10)
  1. NEUTROSPEC [Suspect]
     Indication: SURGERY
     Dosage: 17.5 MCI, ONE TIME, IV
     Route: 042
     Dates: start: 20050502, end: 20050502
  2. ASCORBIC ACID [Concomitant]
  3. ANCEF [Concomitant]
  4. CLEOCIN PHOSPHATE [Concomitant]
  5. TRANDATE [Concomitant]
  6. ZESTRIL [Concomitant]
  7. MULTI-VITAMIN [Concomitant]
  8. ZOLOFT [Concomitant]
  9. ZINC SULFATE [Concomitant]
  10. XANAX [Concomitant]

REACTIONS (7)
  - CARDIO-RESPIRATORY ARREST [None]
  - CONVULSION [None]
  - DYSPNOEA [None]
  - EYE ROLLING [None]
  - MUSCULOSKELETAL STIFFNESS [None]
  - MYOCARDIAL INFARCTION [None]
  - TONIC CLONIC MOVEMENTS [None]
